FAERS Safety Report 7746185-0 (Version None)
Quarter: 2011Q3

REPORT INFORMATION
  Report Type: 
  Country: None (occurrence: None)
  Receive Date: 20110912
  Receipt Date: 20110912
  Transmission Date: 20111222
  Serious: No
  Sender: FDA-Public Use
  Company Number: None

PATIENT
  Age: 2 Year
  Sex: Male

DRUGS (1)
  1. MERIDIA [Suspect]
     Dosage: 1 TASTE/LICK/DROP ESTIMATE INGESTION

REACTIONS (1)
  - ACCIDENTAL DRUG INTAKE BY CHILD [None]
